FAERS Safety Report 20996130 (Version 1)
Quarter: 2022Q2

REPORT INFORMATION
  Report Type: Spontaneous
  Country: US (occurrence: US)
  Receive Date: 20220623
  Receipt Date: 20220623
  Transmission Date: 20220721
  Serious: Yes (Disabling, Other)
  Sender: FDA-Public Use
  Company Number: US-PURDUE-USA-2020-0227417

PATIENT
  Sex: Male

DRUGS (3)
  1. HYDROCODONE BITARTRATE AND ACETAMINOPHEN [Suspect]
     Active Substance: ACETAMINOPHEN\HYDROCODONE BITARTRATE
     Indication: Injury
     Dosage: UNKNOWN
     Route: 048
  2. ACETAMINOPHEN\OXYCODONE HYDROCHLORIDE [Suspect]
     Active Substance: ACETAMINOPHEN\OXYCODONE HYDROCHLORIDE
     Indication: Injury
     Dosage: UNKNOWN
     Route: 048
  3. MORPHINE SULFATE [Suspect]
     Active Substance: MORPHINE SULFATE
     Indication: Injury
     Dosage: UNKNOWN
     Route: 048

REACTIONS (5)
  - Overdose [Unknown]
  - Drug dependence [Unknown]
  - Mental disorder [Unknown]
  - Anxiety [Unknown]
  - General physical health deterioration [Unknown]
